FAERS Safety Report 7250400 (Version 4)
Quarter: 2012Q4

REPORT INFORMATION
  Report Type: Spontaneous
  Country: US (occurrence: None)
  Receive Date: 20100106
  Receipt Date: 20121206
  Transmission Date: 20130627
  Serious: Yes (Death, Hospitalization, Other)
  Sender: FDA-Public Use
  Company Number: 2009003923

PATIENT
  Age: 54 Year
  Sex: Male
  Weight: 115 kg

DRUGS (3)
  1. TARCEVA [Suspect]
     Indication: HEPATIC NEOPLASM MALIGNANT
     Dosage: (150 MG), ORAL
     Route: 048
  2. CAPECITABINE [Suspect]
     Dosage: (500 MG), ORAL
     Route: 048
     Dates: start: 20090929, end: 20100101
  3. THALOMID [Suspect]
     Indication: PRODUCT USED FOR UNKNOWN INDICATION
     Dosage: 100 mg, QHS, Oral
     Route: 048

REACTIONS (6)
  - Constipation [None]
  - Full blood count decreased [None]
  - Metastases to pancreas [None]
  - Blood albumin decreased [None]
  - Oedema peripheral [None]
  - Off label use [None]
